FAERS Safety Report 4775867-8 (Version None)
Quarter: 2005Q3

REPORT INFORMATION
  Report Type: 
  Country: None (occurrence: None)
  Receive Date: 20050914
  Receipt Date: 20050328
  Transmission Date: 20060218
  Serious: Yes (Hospitalization)
  Sender: FDA-Public Use
  Company Number: 163-20785-05030712

PATIENT
  Age: 76 Year
  Sex: Female

DRUGS (2)
  1. THALOMID [Suspect]
     Indication: MULTIPLE MYELOMA
     Dosage: 100 MG, DAILY, ORAL
     Route: 048
     Dates: start: 20050112, end: 20050125
  2. MELPHALAN (MELPHALAN) [Concomitant]

REACTIONS (5)
  - BLOOD CREATININE INCREASED [None]
  - NAUSEA [None]
  - PANCYTOPENIA [None]
  - RASH ERYTHEMATOUS [None]
  - VOMITING [None]
